FAERS Safety Report 7232356-9 (Version None)
Quarter: 2010Q4

REPORT INFORMATION
  Report Type: 
  Country: None (occurrence: None)
  Receive Date: 20101029
  Receipt Date: 20100617
  Transmission Date: 20110411
  Serious: Yes (Other)
  Sender: FDA-Public Use
  Company Number: 2010-2154

PATIENT
  Age: 7 Year
  Sex: Female
  Weight: 16.1 kg

DRUGS (2)
  1. INCRELEX [Suspect]
     Indication: INSULIN-LIKE GROWTH FACTOR DECREASED
     Dosage: 15 UNITS, SUBCUTANEOUS
     Route: 058
     Dates: start: 20080507
  2. NUTROPIN AQ [Suspect]
     Indication: BODY HEIGHT BELOW NORMAL
     Dosage: 14 UNITS, SUBCUTANEOUS
     Route: 058
     Dates: start: 20080507

REACTIONS (3)
  - INTRACRANIAL PRESSURE INCREASED [None]
  - PAPILLOEDEMA [None]
  - PROCEDURAL VOMITING [None]
